FAERS Safety Report 18464384 (Version 2)
Quarter: 2020Q4

REPORT INFORMATION
  Report Type: Spontaneous
  Country: DE (occurrence: DE)
  Receive Date: 20201104
  Receipt Date: 20201120
  Transmission Date: 20210114
  Serious: Yes (Other)
  Sender: FDA-Public Use
  Company Number: DE-ASTRAZENECA-2020SF41761

PATIENT
  Age: 880 Month
  Sex: Male

DRUGS (1)
  1. SYMBICORT [Suspect]
     Active Substance: BUDESONIDE\FORMOTEROL FUMARATE DIHYDRATE
     Indication: ASTHMA
     Dosage: 160.0/4.5, TWO TIMES A DAY
     Route: 055

REACTIONS (7)
  - Therapeutic product effect decreased [Unknown]
  - Respiratory disorder [Unknown]
  - Incorrect dose administered by device [Unknown]
  - Medication error [Unknown]
  - Drug ineffective [Unknown]
  - Cough [Unknown]
  - Drug delivery system issue [Unknown]

NARRATIVE: CASE EVENT DATE: 202003
